FAERS Safety Report 12579838 (Version 1)
Quarter: 2016Q3

REPORT INFORMATION
  Report Type: Spontaneous
  Country: ZA (occurrence: ZA)
  Receive Date: 20160721
  Receipt Date: 20160721
  Transmission Date: 20161109
  Serious: Yes (Death, Hospitalization)
  Sender: FDA-Public Use
  Company Number: ZA-PFIZER INC-2016349038

PATIENT
  Sex: Female

DRUGS (5)
  1. ZYVOXID [Suspect]
     Active Substance: LINEZOLID
     Indication: ANTIBIOTIC THERAPY
     Dosage: 600 MG, 2X/DAY (BD)
     Route: 042
     Dates: start: 20160516
  2. ERAXIS [Suspect]
     Active Substance: ANIDULAFUNGIN
     Indication: ANTIFUNGAL TREATMENT
     Dosage: 200 MG, SINGLE
     Dates: start: 20160516, end: 20160516
  3. MERONEM [Concomitant]
     Active Substance: MEROPENEM
     Dosage: UNK
     Dates: start: 20160516
  4. ERAXIS [Suspect]
     Active Substance: ANIDULAFUNGIN
     Dosage: 100 MG, DAILY
     Dates: start: 20160517
  5. NOXAFIL [Concomitant]
     Active Substance: POSACONAZOLE
     Dosage: UNK
     Dates: start: 20160516

REACTIONS (4)
  - Disease progression [Fatal]
  - Respiratory failure [Fatal]
  - Pneumonia [Fatal]
  - Acute myeloid leukaemia [Fatal]
